FAERS Safety Report 7746240-5 (Version None)
Quarter: 2011Q3

REPORT INFORMATION
  Report Type: 
  Country: None (occurrence: None)
  Receive Date: 20110913
  Receipt Date: 20110829
  Transmission Date: 20111222
  Serious: Yes (Other)
  Sender: FDA-Public Use
  Company Number: US-SHIRE-ALL1-2011-02341

PATIENT
  Sex: Female
  Weight: 112.2 kg

DRUGS (6)
  1. ADDERALL XR 10 [Suspect]
     Indication: ATTENTION DEFICIT/HYPERACTIVITY DISORDER
     Dosage: 25 MG, 1X/DAY:QD
     Route: 048
     Dates: start: 20070101, end: 20110718
  2. RITALIN [Concomitant]
     Indication: ATTENTION DEFICIT/HYPERACTIVITY DISORDER
     Dosage: 20 MG, 1X/DAY:QD
     Route: 048
     Dates: start: 20070101
  3. XANAX [Concomitant]
     Indication: ANXIETY
     Dosage: 2 MG, 1X/DAY:QD
     Route: 048
     Dates: start: 20070101
  4. CYMBALTA [Concomitant]
     Indication: DEPRESSION
     Dosage: 60 MG, 1X/DAY:QD
     Route: 048
     Dates: start: 20080101, end: 20110601
  5. TRAZODONE HCL [Concomitant]
     Indication: DEPRESSION
     Dosage: 50 MG, 1X/DAY:QD
     Route: 048
     Dates: start: 20070101, end: 20110101
  6. WELLBUTRIN XL [Concomitant]
     Indication: DEPRESSION
     Dosage: 150 MG, 1X/DAY:QD
     Route: 048
     Dates: start: 20110617

REACTIONS (8)
  - THROAT IRRITATION [None]
  - DYSPNOEA [None]
  - NASAL DISORDER [None]
  - SINUS HEADACHE [None]
  - WHEEZING [None]
  - INCORRECT ROUTE OF DRUG ADMINISTRATION [None]
  - DRUG ABUSE [None]
  - COUGH [None]
